FAERS Safety Report 8314319-5 (Version None)
Quarter: 2012Q1

REPORT INFORMATION
  Report Type: 
  Country: None (occurrence: None)
  Receive Date: 20120315
  Receipt Date: 20110324
  Transmission Date: 20120608
  Serious: Yes (Other)
  Sender: FDA-Public Use
  Company Number: PHHY2011US25073

PATIENT
  Age: 47 Year
  Sex: Female
  Weight: 47.6 kg

DRUGS (5)
  1. DETROL [Concomitant]
  2. FLEXERIL [Concomitant]
  3. GILENYA [Suspect]
     Indication: RELAPSING-REMITTING MULTIPLE SCLEROSIS
     Dosage: 0.5 MG, QD, ORAL
     Route: 048
     Dates: start: 20110107
  4. CLONAZEPAM [Concomitant]
  5. LOESTRIN (ETHINYLESTRADIOL, NORETHISTERONE ACETATE) TABLET [Concomitant]

REACTIONS (1)
  - BLOOD PRESSURE INCREASED [None]
